FAERS Safety Report 8131110-3 (Version None)
Quarter: 2012Q1

REPORT INFORMATION
  Report Type: 
  Country: None (occurrence: None)
  Receive Date: 20120213
  Receipt Date: 20111011
  Transmission Date: 20120608
  Serious: No
  Sender: FDA-Public Use
  Company Number: CA-JNJFOC-20120205098

PATIENT
  Sex: Female
  Weight: 75.3 kg

DRUGS (4)
  1. PANTOPRAZOLE SODIUM [Concomitant]
  2. REMICADE [Suspect]
     Indication: ANKYLOSING SPONDYLITIS
     Route: 042
     Dates: start: 20110831
  3. VITAMIN D [Concomitant]
  4. VOLTAREN [Concomitant]

REACTIONS (1)
  - VULVOVAGINAL MYCOTIC INFECTION [None]
